FAERS Safety Report 14572928 (Version 1)
Quarter: 2018Q1

REPORT INFORMATION
  Report Type: Spontaneous
  Country: IT (occurrence: IT)
  Receive Date: 20180226
  Receipt Date: 20180226
  Transmission Date: 20180509
  Serious: Yes (Hospitalization)
  Sender: FDA-Public Use
  Company Number: IT-PFIZER INC-2017153264

PATIENT
  Age: 52 Year
  Sex: Female

DRUGS (3)
  1. SONGAR [Suspect]
     Active Substance: TRIAZOLAM
     Dosage: 1 DF, SINGLE
     Route: 048
  2. LENDORMIN [Suspect]
     Active Substance: BROTIZOLAM
     Dosage: 4 DF, SINGLE
     Route: 048
  3. XANAX [Suspect]
     Active Substance: ALPRAZOLAM
     Dosage: 1 DF, SINGLE
     Route: 048

REACTIONS (2)
  - Drug abuse [Unknown]
  - Sopor [Unknown]

NARRATIVE: CASE EVENT DATE: 20170219
